FAERS Safety Report 13088414 (Version 2)
Quarter: 2017Q1

REPORT INFORMATION
  Report Type: Spontaneous
  Country: FR (occurrence: FR)
  Receive Date: 20170105
  Receipt Date: 20170317
  Transmission Date: 20170428
  Serious: Yes (Hospitalization)
  Sender: FDA-Public Use
  Company Number: FR-PFIZER INC-2016603878

PATIENT
  Age: 73 Year
  Sex: Female

DRUGS (16)
  1. PRIMPERAN [Concomitant]
     Active Substance: METOCLOPRAMIDE HYDROCHLORIDE
     Indication: NAUSEA
     Dosage: 30 MG, DAILY IF REQUIRED
  2. CARBOPLATINE HOSPIRA [Suspect]
     Active Substance: CARBOPLATIN
     Dosage: 320 MG, UNK
     Route: 041
     Dates: start: 20161107, end: 20161115
  3. NEBIVOLOL. [Concomitant]
     Active Substance: NEBIVOLOL
     Dosage: 5 MG, 1X/DAY (MORNING)
  4. MOVICOL [Concomitant]
     Active Substance: POLYETHYLENE GLYCOL 3350\POTASSIUM CHLORIDE\SODIUM BICARBONATE\SODIUM CHLORIDE
     Indication: CONSTIPATION
     Dosage: 2 DF, 2X/DAY IF REQUIRED (2 SACHETS)
  5. SETOFILM [Concomitant]
     Active Substance: ONDANSETRON
     Indication: NAUSEA
     Dosage: 8 MG, 2X/DAY (EVERY 12 HRS) IF REQUIRED
  6. SODIUM BICARBONATE. [Concomitant]
     Active Substance: SODIUM BICARBONATE
     Indication: THERAPEUTIC GARGLE
     Dosage: UNK
  7. CARBOPLATINE HOSPIRA [Suspect]
     Active Substance: CARBOPLATIN
     Dosage: 320 MG, UNK
     Route: 041
     Dates: start: 20161206, end: 20161206
  8. SOLUPRED [Concomitant]
     Active Substance: PREDNISOLONE
     Dosage: 50 MG, 2 DAYS (AFTER CHEMOTHERAPY)
  9. AMLOR [Concomitant]
     Active Substance: AMLODIPINE BESYLATE
     Dosage: 5 MG, 2X/DAY (MORNING AND EVENING)
  10. ALPRAZOLAM. [Concomitant]
     Active Substance: ALPRAZOLAM
     Indication: ANXIETY
     Dosage: 0.75 MG, DAILY IF REQUIRED
  11. ZARZIO [Concomitant]
     Active Substance: FILGRASTIM
     Dosage: 30 MILLION IU, 1 INJECTION THE DAY AFTER CHEMOTHERAPY
     Route: 058
  12. CARBOPLATINE HOSPIRA [Suspect]
     Active Substance: CARBOPLATIN
     Indication: OVARIAN EPITHELIAL CANCER
     Dosage: 320 MG, UNK
     Route: 041
     Dates: start: 20161017, end: 20161024
  13. DOLIPRANE [Concomitant]
     Active Substance: ACETAMINOPHEN
     Indication: PAIN
     Dosage: 4 G, DAILY (MAXIMUM A DAY IN CASE OF PAIN)
  14. GEMZAR [Concomitant]
     Active Substance: GEMCITABINE HYDROCHLORIDE
     Dosage: 1803 MG, (1000 MG/M2)
     Dates: start: 20161206, end: 20161206
  15. GEMZAR [Concomitant]
     Active Substance: GEMCITABINE HYDROCHLORIDE
     Indication: OVARIAN EPITHELIAL CANCER
     Dosage: 1803 MG, (1000 MG/M2)
     Dates: start: 20161017, end: 20161024
  16. GEMZAR [Concomitant]
     Active Substance: GEMCITABINE HYDROCHLORIDE
     Dosage: 1803 MG, (1000 MG/M2)
     Dates: start: 20161107, end: 20161115

REACTIONS (4)
  - Hypotension [Recovered/Resolved]
  - Bradycardia [Recovered/Resolved]
  - Anaphylactic shock [Recovered/Resolved]
  - Hypoacusis [Unknown]

NARRATIVE: CASE EVENT DATE: 20161206
